FAERS Safety Report 8402186-0 (Version None)
Quarter: 2012Q2

REPORT INFORMATION
  Report Type: 
  Country: None (occurrence: None)
  Receive Date: 20120525
  Receipt Date: 20120518
  Transmission Date: 20120825
  Serious: Yes (Death)
  Sender: FDA-Public Use
  Company Number: 2012SP023748

PATIENT
  Age: 30 Year
  Sex: Male

DRUGS (3)
  1. PEG-INTRON [Suspect]
     Indication: HEPATITIS C
     Dosage: 120 MCG, QW
     Dates: start: 20120314, end: 20120425
  2. ALCOHOL [Concomitant]
  3. COPEGUS [Suspect]
     Indication: PRODUCT USED FOR UNKNOWN INDICATION
     Dosage: UNK

REACTIONS (5)
  - FEELING ABNORMAL [None]
  - BRADYCARDIA [None]
  - PANCREATIC NECROSIS [None]
  - HYPERHIDROSIS [None]
  - ALCOHOL ABUSE [None]
